FAERS Safety Report 9014192 (Version 2)
Quarter: 2013Q1

REPORT INFORMATION
  Report Type: Spontaneous
  Country: FR (occurrence: FR)
  Receive Date: 20130115
  Receipt Date: 20130208
  Transmission Date: 20140127
  Serious: Yes (Other)
  Sender: FDA-Public Use
  Company Number: FR-JNJFOC-20130104769

PATIENT
  Sex: Male
  Weight: 105 kg

DRUGS (4)
  1. INTELENCE [Suspect]
     Indication: ANTIVIRAL TREATMENT
     Route: 048
     Dates: start: 20110916
  2. INTELENCE [Suspect]
     Indication: ANTIVIRAL TREATMENT
     Route: 048
     Dates: end: 201206
  3. INTELENCE [Suspect]
     Indication: ANTIVIRAL TREATMENT
     Route: 048
     Dates: start: 201210, end: 20130118
  4. TRUVADA [Concomitant]
     Indication: ANTIVIRAL TREATMENT
     Route: 048
     Dates: start: 20080612

REACTIONS (8)
  - Tetany [Unknown]
  - Walking disability [Unknown]
  - Muscle contracture [Recovering/Resolving]
  - Pain in extremity [Recovering/Resolving]
  - Local swelling [Unknown]
  - Cyanosis [Unknown]
  - Myalgia [Unknown]
  - Gait disturbance [Recovering/Resolving]
